FAERS Safety Report 9067838 (Version 1)
Quarter: 2013Q1

REPORT INFORMATION
  Report Type: Spontaneous
  Country: US (occurrence: US)
  Receive Date: 20130128
  Receipt Date: 20130128
  Transmission Date: 20140127
  Serious: Yes (Hospitalization)
  Sender: FDA-Public Use
  Company Number: US-ELI_LILLY_AND_COMPANY-US201301006263

PATIENT
  Age: 63 Year
  Sex: Female

DRUGS (6)
  1. CYMBALTA [Suspect]
     Indication: DEPRESSION
  2. XANAX [Concomitant]
  3. FOSAMAX [Concomitant]
  4. DOXYCLINE [Concomitant]
  5. ZYRTEC [Concomitant]
  6. NASONEX [Concomitant]

REACTIONS (1)
  - Joint injury [Unknown]
